FAERS Safety Report 8952771 (Version 1)
Quarter: 2012Q4

REPORT INFORMATION
  Report Type: 
  Country: BR (occurrence: BR)
  Receive Date: 20121204
  Receipt Date: 20121204
  Transmission Date: 20130627
  Serious: Yes (Other)
  Sender: FDA-Public Use
  Company Number: BR-ROCHE-1161454

PATIENT
  Sex: Female
  Weight: 55 kg

DRUGS (3)
  1. ROACUTAN [Suspect]
     Indication: ACNE
     Route: 048
     Dates: start: 201201, end: 201206
  2. YAZ [Concomitant]
     Indication: CONTRACEPTION
     Route: 065
  3. BROMAZEPAM [Concomitant]
     Indication: DEPRESSION
     Route: 065

REACTIONS (1)
  - Pregnancy [Unknown]
